FAERS Safety Report 10521685 (Version 2)
Quarter: 2014Q4

REPORT INFORMATION
  Report Type: Spontaneous
  Country: US (occurrence: None)
  Receive Date: 20141014
  Receipt Date: 20141117
  Transmission Date: 20150528
  Serious: No
  Sender: FDA-Public Use
  Company Number: 2014-00088

PATIENT
  Age: 45 Year
  Sex: Male
  Weight: 108.86 kg

DRUGS (2)
  1. ZICAM COLD REMEDY RAPIDMELTS [Suspect]
     Active Substance: ZINC ACETATE ANHYDROUS\ZINC GLUCONATE
     Indication: PROPHYLAXIS
     Dosage: 1 RAPIDMELT ORALLY EVERY 3 HOURS
     Route: 048
     Dates: start: 20141006
  2. ZICAM COLD REMEDY RAPIDMELTS [Suspect]
     Active Substance: ZINC ACETATE ANHYDROUS\ZINC GLUCONATE
     Indication: NASOPHARYNGITIS
     Dosage: 1 RAPIDMELT ORALLY EVERY 3 HOURS
     Route: 048
     Dates: start: 20141006

REACTIONS (3)
  - Nausea [None]
  - Paranasal sinus discomfort [None]
  - Ageusia [None]

NARRATIVE: CASE EVENT DATE: 20141006
